FAERS Safety Report 7810136-0 (Version None)
Quarter: 2011Q4

REPORT INFORMATION
  Report Type: 
  Country: None (occurrence: None)
  Receive Date: 20111012
  Receipt Date: 20111010
  Transmission Date: 20120403
  Serious: Yes (Other)
  Sender: FDA-Public Use
  Company Number: US-PFIZER INC-2011241624

PATIENT
  Sex: Female
  Weight: 76.644 kg

DRUGS (7)
  1. LYRICA [Suspect]
     Indication: FIBROMYALGIA
     Dosage: 1 DF, 1X/DAY
     Dates: start: 20111001
  2. LYRICA [Suspect]
     Dosage: 1 DF, 2X/DAY
     Dates: end: 20111008
  3. ALLEGRA [Concomitant]
     Indication: HYPERSENSITIVITY
     Dosage: UNK
  4. HYDROCODONE [Concomitant]
     Indication: PAIN
     Dosage: 7.5 MG, DAILY
  5. TRAMADOL [Concomitant]
     Indication: GLAUCOMA
     Dosage: UNK
     Route: 047
  6. WELLBUTRIN [Concomitant]
     Indication: DEPRESSION
     Dosage: UNK
  7. ISTALOL [Concomitant]
     Indication: GLAUCOMA
     Dosage: UNK
     Route: 047

REACTIONS (2)
  - VISION BLURRED [None]
  - BLOOD PRESSURE INCREASED [None]
